FAERS Safety Report 22000193 (Version 1)
Quarter: 2023Q1

REPORT INFORMATION
  Report Type: Spontaneous
  Country: US (occurrence: US)
  Receive Date: 20230216
  Receipt Date: 20230216
  Transmission Date: 20230418
  Serious: No
  Sender: FDA-Public Use
  Company Number: US-ALXN-A202301883

PATIENT
  Sex: Male

DRUGS (1)
  1. SOLIRIS [Suspect]
     Active Substance: ECULIZUMAB
     Indication: Myasthenia gravis
     Dosage: UNK
     Route: 065
     Dates: start: 2022

REACTIONS (4)
  - Diplopia [Not Recovered/Not Resolved]
  - Dysphonia [Not Recovered/Not Resolved]
  - Mastication disorder [Not Recovered/Not Resolved]
  - Drug ineffective [Unknown]
